FAERS Safety Report 16291565 (Version 1)
Quarter: 2019Q2

REPORT INFORMATION
  Report Type: Spontaneous
  Country: US (occurrence: US)
  Receive Date: 20190509
  Receipt Date: 20190509
  Transmission Date: 20190711
  Serious: Yes (Other)
  Sender: FDA-Public Use
  Company Number: US-BRACCO-2019US02247

PATIENT

DRUGS (6)
  1. MULTIHANCE [Suspect]
     Active Substance: GADOBENATE DIMEGLUMINE
     Indication: DIAGNOSTIC PROCEDURE
     Dosage: UNK, SINGLE
     Route: 042
  2. OPTIMARK [Suspect]
     Active Substance: GADOVERSETAMIDE
     Indication: DIAGNOSTIC PROCEDURE
     Route: 042
  3. MAGNEVIST [Suspect]
     Active Substance: GADOPENTETATE DIMEGLUMINE
     Indication: DIAGNOSTIC PROCEDURE
     Route: 042
  4. GADOLINIUM [Suspect]
     Active Substance: GADOLINIUM
     Indication: DIAGNOSTIC PROCEDURE
     Route: 042
  5. GADOXETATE DISODIUM. [Suspect]
     Active Substance: GADOXETATE DISODIUM
     Indication: DIAGNOSTIC PROCEDURE
     Route: 042
  6. OMNISCAN [Suspect]
     Active Substance: GADODIAMIDE
     Indication: DIAGNOSTIC PROCEDURE
     Route: 042

REACTIONS (18)
  - Injury [Unknown]
  - Fatigue [Unknown]
  - Rash [Unknown]
  - Gadolinium deposition disease [Unknown]
  - Confusional state [Unknown]
  - Movement disorder [Unknown]
  - Anxiety [Unknown]
  - Off label use [Unknown]
  - Asthenia [Unknown]
  - Pain [Unknown]
  - Muscle spasms [Unknown]
  - Hypoaesthesia [Unknown]
  - Mass [Unknown]
  - Mental status changes [Unknown]
  - Inflammation [Unknown]
  - Paraesthesia [Unknown]
  - Arthralgia [Unknown]
  - Burning sensation [Unknown]
